FAERS Safety Report 10595213 (Version 2)
Quarter: 2014Q4

REPORT INFORMATION
  Report Type: Report from Study
  Country: KR (occurrence: KR)
  Receive Date: 20141120
  Receipt Date: 20141125
  Transmission Date: 20150529
  Serious: Yes (Death, Hospitalization)
  Sender: FDA-Public Use
  Company Number: KR-ASTELLAS-2014US017275

PATIENT
  Age: 75 Year
  Sex: Male
  Weight: 62 kg

DRUGS (4)
  1. PLAVIX [Concomitant]
     Active Substance: CLOPIDOGREL BISULFATE
     Indication: PRODUCT USED FOR UNKNOWN INDICATION
     Dosage: UNK UNK, UNKNOWN FREQ.
     Route: 065
  2. APIDRA [Concomitant]
     Active Substance: INSULIN GLULISINE
     Indication: DIABETES MELLITUS
     Dosage: UNK UNK, ONCE DAILY AS NEEDED
     Route: 058
     Dates: start: 20141110
  3. CEFTRIAXONE. [Concomitant]
     Active Substance: CEFTRIAXONE
     Indication: URINARY TRACT INFECTION
     Dosage: 2.0 G, ONCE DAILY
     Route: 042
     Dates: start: 20141110
  4. ENZALUTAMIDE [Suspect]
     Active Substance: ENZALUTAMIDE
     Indication: PROSTATE CANCER METASTATIC
     Dosage: UNK, UNKNOWN FREQ.
     Route: 065
     Dates: start: 20141027, end: 20141109

REACTIONS (3)
  - Somnolence [Fatal]
  - Asthenia [Fatal]
  - Death [Fatal]

NARRATIVE: CASE EVENT DATE: 20141110
